FAERS Safety Report 7904686-6 (Version None)
Quarter: 2011Q4

REPORT INFORMATION
  Report Type: 
  Country: None (occurrence: None)
  Receive Date: 20111109
  Receipt Date: 20111003
  Transmission Date: 20120403
  Serious: Yes (Other)
  Sender: FDA-Public Use
  Company Number: JP-GLAXOSMITHKLINE-B0753509A

PATIENT
  Sex: Female

DRUGS (4)
  1. CYMBALTA [Concomitant]
     Indication: DEPRESSION
     Dosage: 40MG PER DAY
     Route: 048
  2. LAMICTAL [Suspect]
     Indication: DEPRESSION
     Dosage: 25MG PER DAY
     Route: 048
     Dates: start: 20110917, end: 20111002
  3. ROHYPNOL [Concomitant]
     Dosage: 2MG PER DAY
     Route: 048
  4. RISUMIC [Concomitant]
     Dosage: 20MG PER DAY
     Route: 048

REACTIONS (5)
  - ERYTHEMA MULTIFORME [None]
  - STOMATITIS [None]
  - C-REACTIVE PROTEIN INCREASED [None]
  - PYREXIA [None]
  - WHITE BLOOD CELL COUNT ABNORMAL [None]
